FAERS Safety Report 14423872 (Version 4)
Quarter: 2018Q3

REPORT INFORMATION
  Report Type: Spontaneous
  Country: US (occurrence: US)
  Receive Date: 20180123
  Receipt Date: 20180928
  Transmission Date: 20181010
  Serious: No
  Sender: FDA-Public Use
  Company Number: US-BRISTOL-MYERS SQUIBB COMPANY-BMS-2018-006128

PATIENT
  Sex: Female
  Weight: 86.17 kg

DRUGS (2)
  1. ORENCIA [Suspect]
     Active Substance: ABATACEPT
     Indication: PRODUCT USED FOR UNKNOWN INDICATION
     Dosage: 80 MG, QWK
     Route: 058
     Dates: start: 201504
  2. ORENCIA [Suspect]
     Active Substance: ABATACEPT
     Indication: RHEUMATOID ARTHRITIS
     Dosage: 125 MG, QWK
     Route: 058
     Dates: start: 201504

REACTIONS (5)
  - Gout [Unknown]
  - Off label use [Unknown]
  - Influenza [Unknown]
  - Malaise [Unknown]
  - Pain in extremity [Unknown]
